FAERS Safety Report 22113688 (Version 1)
Quarter: 2023Q1

REPORT INFORMATION
  Report Type: Report from Study
  Country: DE (occurrence: DE)
  Receive Date: 20230320
  Receipt Date: 20230320
  Transmission Date: 20230418
  Serious: Yes (Death)
  Sender: FDA-Public Use
  Company Number: DE-002147023-NVSC2023DE063123

PATIENT
  Sex: Male

DRUGS (1)
  1. OMNITROPE [Suspect]
     Active Substance: SOMATROPIN
     Indication: Growth hormone deficiency
     Dosage: UNK (DOSE: 1.3)
     Route: 065
     Dates: start: 20200901, end: 20221127

REACTIONS (1)
  - Central nervous system lesion [Fatal]

NARRATIVE: CASE EVENT DATE: 20221127
